FAERS Safety Report 6330784-7 (Version None)
Quarter: 2009Q3

REPORT INFORMATION
  Report Type: 
  Country: None (occurrence: None)
  Receive Date: 20090827
  Receipt Date: 20090817
  Transmission Date: 20100115
  Serious: Yes (Hospitalization, Disabling)
  Sender: FDA-Public Use
  Company Number: PHHY2009FI34566

PATIENT
  Sex: Female

DRUGS (9)
  1. SANDIMMUNE [Suspect]
     Indication: PSORIASIS
  2. TRIPSOR [Suspect]
  3. BATH PUVA TREATMENT [Suspect]
  4. ULTRAVIOLET-A [Suspect]
  5. TREXAN [Suspect]
  6. NEOTIGASON [Suspect]
  7. RAPTIVA [Suspect]
     Dosage: 46.2 MG, ONCE A WEEK
     Route: 058
     Dates: start: 20051201, end: 20071201
  8. ENBREL [Concomitant]
     Dosage: 25 MG, QW2
     Route: 058
     Dates: start: 20080201
  9. ENBREL [Concomitant]
     Dosage: 50 MG ONCE A WEEK
     Route: 058
     Dates: end: 20090501

REACTIONS (2)
  - BACK PAIN [None]
  - MULTIPLE MYELOMA [None]
